FAERS Safety Report 7729237-0 (Version None)
Quarter: 2011Q3

REPORT INFORMATION
  Report Type: 
  Country: None (occurrence: None)
  Receive Date: 20110906
  Receipt Date: 20110830
  Transmission Date: 20111222
  Serious: No
  Sender: FDA-Public Use
  Company Number: US-PFIZER INC-2011202866

PATIENT
  Age: 29 Year
  Sex: Male

DRUGS (7)
  1. ALENDRONATE SODIUM [Concomitant]
     Indication: OSTEOPOROSIS
     Dosage: 70 MG, WEEKLY
  2. PROMETHAZINE [Concomitant]
     Indication: NAUSEA
     Dosage: UNK
  3. BUPROPION HYDROCHLORIDE [Concomitant]
     Indication: DEPRESSION
     Dosage: 150 MG, 2 IN 1 D
  4. LORAZEPAM [Concomitant]
     Indication: SLEEP TERROR
     Dosage: 1 MG, AS NEEDED
  5. HYDROMORPHONE HYDROCHLORIDE [Concomitant]
     Indication: PAIN
     Dosage: UNK
  6. PENICILLIN [Suspect]
     Dosage: UNK
  7. AZATHIOPRINE SODIUM [Concomitant]
     Indication: CROHN'S DISEASE
     Dosage: 50 MG, 1 IN 1 D

REACTIONS (1)
  - DRUG HYPERSENSITIVITY [None]
